FAERS Safety Report 8856552 (Version 1)
Quarter: 2012Q4

REPORT INFORMATION
  Report Type: Spontaneous
  Country: IT (occurrence: None)
  Receive Date: 20121019
  Receipt Date: 20121019
  Transmission Date: 20130627
  Serious: Yes (Other)
  Sender: FDA-Public Use
  Company Number: 1447354

PATIENT
  Age: 65 Year
  Sex: Female
  Weight: 62 kg

DRUGS (1)
  1. CARBOPLATIN [Suspect]
     Indication: OVARIAN CANCER
     Dosage: 280 Mg milligram(s), Cyclical, Intravenous (not otherwise specified)
     Route: 042
     Dates: start: 20120508, end: 20120918

REACTIONS (1)
  - Hypersensitivity [None]
